FAERS Safety Report 4452710-8 (Version None)
Quarter: 2004Q3

REPORT INFORMATION
  Report Type: 
  Country: None (occurrence: None)
  Receive Date: 20040813
  Receipt Date: 20040422
  Transmission Date: 20050211
  Serious: No
  Sender: FDA-Public Use
  Company Number: S04-USA-03483-01

PATIENT
  Age: 66 Year
  Sex: Female

DRUGS (7)
  1. NAMENDA [Suspect]
     Indication: DEMENTIA ALZHEIMER'S TYPE
     Dosage: 10 MG QID PO
     Route: 048
     Dates: start: 20040421, end: 20040421
  2. NAMENDA [Suspect]
     Indication: DEMENTIA ALZHEIMER'S TYPE
     Dosage: 10 MG BID PO
     Route: 048
     Dates: start: 20040422
  3. NAMENDA [Suspect]
     Indication: DEMENTIA ALZHEIMER'S TYPE
     Dosage: 10 MG BID PO
     Route: 048
     Dates: start: 20040301, end: 20040420
  4. ARICEPT [Concomitant]
  5. ASPIRIN [Concomitant]
  6. HIGH BLOOD PRESSURE MEDICATION [Concomitant]
  7. WATER PILLS [Concomitant]

REACTIONS (4)
  - CONFUSIONAL STATE [None]
  - DIZZINESS [None]
  - FALL [None]
  - MEDICATION ERROR [None]
